FAERS Safety Report 7579165-9 (Version None)
Quarter: 2011Q2

REPORT INFORMATION
  Report Type: 
  Country: None (occurrence: None)
  Receive Date: 20110628
  Receipt Date: 20110622
  Transmission Date: 20111010
  Serious: Yes (Hospitalization, Other)
  Sender: FDA-Public Use
  Company Number: PT-BRISTOL-MYERS SQUIBB COMPANY-15747314

PATIENT
  Sex: Male

DRUGS (12)
  1. TRUVADA [Suspect]
     Indication: HIV INFECTION
     Dates: start: 20090123
  2. VALPROATE SODIUM [Concomitant]
     Dates: start: 20110402, end: 20110101
  3. COMBIVIR [Concomitant]
     Indication: HIV INFECTION
  4. REYATAZ [Suspect]
     Indication: HIV INFECTION
     Route: 048
     Dates: start: 20090123
  5. MIRTAZAPINE [Concomitant]
  6. RITONAVIR [Suspect]
     Indication: HIV INFECTION
     Dates: start: 20090123
  7. RIBAVIRIN [Suspect]
     Indication: HEPATITIS C
     Dosage: 01JUN10
     Dates: start: 20100301
  8. NIMESULIDE [Concomitant]
     Dates: start: 20110415
  9. PEGINTERFERON ALFA-2B [Suspect]
     Indication: HEPATITIS C
     Dosage: DOSE INCREASED TO 180 MCG ON 03-OCT-2010
     Dates: start: 20100611
  10. BIOFLAVONOID [Concomitant]
     Dates: start: 20110421
  11. CLONAZEPAM [Concomitant]
  12. IRON + FOLIC ACID [Concomitant]

REACTIONS (6)
  - CHOLECYSTITIS ACUTE [None]
  - CHOLELITHIASIS [None]
  - MENTAL DISORDER [None]
  - HAEMORRHOIDS [None]
  - HYPERBILIRUBINAEMIA [None]
  - TRANSAMINASES INCREASED [None]
